FAERS Safety Report 9752467 (Version 1)
Quarter: 2013Q4

REPORT INFORMATION
  Report Type: Report from Study
  Country: CA (occurrence: CA)
  Receive Date: 20131213
  Receipt Date: 20131213
  Transmission Date: 20140711
  Serious: Yes (Other)
  Sender: FDA-Public Use
  Company Number: CA-JNJFOC-20131204603

PATIENT
  Sex: Female
  Weight: 47.63 kg

DRUGS (5)
  1. REMICADE [Suspect]
     Indication: COLITIS ULCERATIVE
     Route: 042
  2. REMICADE [Suspect]
     Indication: COLITIS ULCERATIVE
     Route: 042
     Dates: end: 201311
  3. REMICADE [Suspect]
     Indication: COLITIS ULCERATIVE
     Route: 042
     Dates: start: 201211
  4. REMICADE [Suspect]
     Indication: COLITIS ULCERATIVE
     Route: 042
     Dates: start: 201310, end: 201310
  5. PREDNISONE [Concomitant]
     Route: 065

REACTIONS (7)
  - Aneurysm [Unknown]
  - Night sweats [Unknown]
  - Headache [Unknown]
  - Drug ineffective [Unknown]
  - Abasia [Unknown]
  - Anxiety [Unknown]
  - Drug hypersensitivity [Unknown]
